FAERS Safety Report 8595939 (Version 3)
Quarter: 2013Q4

REPORT INFORMATION
  Report Type: Spontaneous
  Country: US (occurrence: US)
  Receive Date: 20120605
  Receipt Date: 20131011
  Transmission Date: 20140711
  Serious: Yes (Hospitalization, Disabling)
  Sender: FDA-Public Use
  Company Number: US-ASTRAZENECA-2012SE35497

PATIENT
  Age: 25 Year
  Sex: Female
  Weight: 56.2 kg

DRUGS (22)
  1. NEXIUM [Suspect]
     Indication: ABDOMINAL DISCOMFORT
     Dosage: TWICE A DAY
     Route: 048
     Dates: start: 2007, end: 2009
  2. NEXIUM [Suspect]
     Indication: ABDOMINAL DISCOMFORT
     Dosage: GENERIC
     Route: 048
  3. OMEPRAZOLE DR [Concomitant]
     Dates: start: 20090105
  4. HYDROCODON ACETAM [Concomitant]
     Dates: start: 20090623
  5. NAPROXEN [Concomitant]
     Dates: start: 20090623
  6. DOXYCYCLINE HYCLAT [Concomitant]
     Dates: start: 20090706
  7. METHYLPREDNISOLONE [Concomitant]
     Dates: start: 20090915
  8. METHOCARBAMOL/ROBAXIN [Concomitant]
     Dates: start: 20090915
  9. MELOXICAM [Concomitant]
     Dates: start: 20090915
  10. PHENAZOPYRIDINE [Concomitant]
     Dates: start: 20090915
  11. CIPROFLOXACIN HCL [Concomitant]
     Dates: start: 20090915
  12. TRAMADOL HCL [Concomitant]
     Dates: start: 20090918
  13. CYCLOBENZAPRINE [Concomitant]
     Dates: start: 20091015
  14. IBUPROFEN [Concomitant]
     Dates: start: 20091015
  15. PRENATE ESSENTIAL [Concomitant]
     Dates: start: 20110117
  16. TUMS [Concomitant]
  17. ROLAIDS [Concomitant]
  18. MULTI VITAMINS [Concomitant]
  19. CELEXA [Concomitant]
  20. TORADOL [Concomitant]
  21. TYLENOL [Concomitant]
  22. PEPCID [Concomitant]

REACTIONS (7)
  - Fracture pain [Unknown]
  - Road traffic accident [Unknown]
  - Acetabulum fracture [Unknown]
  - Osteoporosis [Unknown]
  - Multiple fractures [Unknown]
  - Arthralgia [Unknown]
  - Joint stiffness [Unknown]
